FAERS Safety Report 25079561 (Version 1)
Quarter: 2025Q1

REPORT INFORMATION
  Report Type: Report from Study
  Country: JP (occurrence: JP)
  Receive Date: 20250314
  Receipt Date: 20250314
  Transmission Date: 20250409
  Serious: Yes (Death, Other)
  Sender: GILEAD
  Company Number: JP-GILEAD-2025-0706889

PATIENT
  Age: 67 Year
  Sex: Female

DRUGS (1)
  1. AXICABTAGENE CILOLEUCEL [Suspect]
     Active Substance: AXICABTAGENE CILOLEUCEL
     Indication: Product used for unknown indication
     Route: 041
     Dates: start: 20231006, end: 20231006

REACTIONS (8)
  - Disease progression [Fatal]
  - Cerebrovascular disorder [Unknown]
  - Depressed level of consciousness [Recovered/Resolved]
  - Cognitive disorder [Recovered/Resolved]
  - Cytokine release syndrome [Recovered/Resolved]
  - Immune effector cell-associated neurotoxicity syndrome [Recovered/Resolved]
  - Disturbance in attention [Unknown]
  - Pyrexia [Recovered/Resolved]

NARRATIVE: CASE EVENT DATE: 20231012
